FAERS Safety Report 6135521-7 (Version None)
Quarter: 2009Q1

REPORT INFORMATION
  Report Type: 
  Country: None (occurrence: None)
  Receive Date: 20090327
  Receipt Date: 20090320
  Transmission Date: 20090719
  Serious: Yes (Other)
  Sender: FDA-Public Use
  Company Number: B0566000A

PATIENT
  Age: 15 Year
  Sex: Female

DRUGS (1)
  1. FLIXONASE [Suspect]
     Dosage: 2SPR PER DAY
     Route: 045
     Dates: start: 20081201

REACTIONS (2)
  - EPISTAXIS [None]
  - EYE HAEMORRHAGE [None]
